FAERS Safety Report 6442676-3 (Version None)
Quarter: 2009Q4

REPORT INFORMATION
  Report Type: 
  Country: None (occurrence: None)
  Receive Date: 20091117
  Receipt Date: 20091109
  Transmission Date: 20100525
  Serious: Yes (Other)
  Sender: FDA-Public Use
  Company Number: US-ASTRAZENECA-2007UW14886

PATIENT
  Age: 15655 Day
  Sex: Male
  Weight: 121.1 kg

DRUGS (17)
  1. SEROQUEL [Suspect]
     Indication: SLEEP DISORDER
     Dosage: 100-900 MG
     Route: 048
     Dates: start: 20030120
  2. SEROQUEL [Suspect]
     Dosage: 300-400MG
     Route: 048
  3. SEROQUEL [Suspect]
     Route: 048
     Dates: start: 20020401
  4. ZOCOR [Concomitant]
     Dates: start: 20030124
  5. GLUCOVANCE [Concomitant]
     Dosage: 500/2.5 MG
     Dates: start: 20030127
  6. AVANDIA [Concomitant]
     Dates: start: 20030107
  7. ALTACE [Concomitant]
     Dates: start: 20030120
  8. CELEXA [Concomitant]
     Dosage: 20-30 MG
     Dates: start: 20030107
  9. NEURONTIN [Concomitant]
     Indication: DIABETIC NEUROPATHY
     Dosage: 300-600 MG
     Dates: start: 20030303
  10. ALLEGRA D 24 HOUR [Concomitant]
     Dosage: 12 HRS
     Dates: start: 20030212
  11. ABILIFY [Concomitant]
     Dates: start: 20041202
  12. CYMBALTA [Concomitant]
     Dosage: 30-60 MG
     Dates: start: 20041202
  13. METFORMIN HCL [Concomitant]
     Dates: start: 20041202
  14. NAPROXEN [Concomitant]
     Dates: start: 20041202
  15. AUGMENTIN XR [Concomitant]
     Dosage: 2 IN MORNING AND 2 IN AFTERNOON
     Dates: start: 20060217
  16. DECONSAL II [Concomitant]
     Dosage: 1 PO BID
     Route: 048
     Dates: start: 20060217
  17. VICOPROFEN [Concomitant]
     Dosage: 6-8 HRS,PRN
     Route: 048
     Dates: start: 20060217

REACTIONS (4)
  - DIABETIC NEUROPATHY [None]
  - DIABETIC RETINOPATHY [None]
  - TYPE 1 DIABETES MELLITUS [None]
  - TYPE 2 DIABETES MELLITUS [None]
